FAERS Safety Report 10014600 (Version 1)
Quarter: 2014Q1

REPORT INFORMATION
  Report Type: Spontaneous
  Country: GB (occurrence: GB)
  Receive Date: 20140317
  Receipt Date: 20140317
  Transmission Date: 20141002
  Serious: Yes (Other)
  Sender: FDA-Public Use
  Company Number: GB-ELI_LILLY_AND_COMPANY-GB201403000741

PATIENT
  Sex: Male

DRUGS (3)
  1. ZYPADHERA [Suspect]
     Indication: SCHIZOPHRENIA
     Dosage: 405 MG, MONTHLY (1/M)
     Route: 030
     Dates: start: 201312
  2. ZYPADHERA [Suspect]
     Dosage: 300 MG, 2/W
     Route: 030
     Dates: start: 201402
  3. DEPACON [Concomitant]

REACTIONS (2)
  - Aggression [Not Recovered/Not Resolved]
  - Psychiatric decompensation [Not Recovered/Not Resolved]
